FAERS Safety Report 11971682 (Version 3)
Quarter: 2024Q1

REPORT INFORMATION
  Report Type: Spontaneous
  Country: CH (occurrence: CH)
  Receive Date: 20160128
  Receipt Date: 20240124
  Transmission Date: 20240410
  Serious: Yes (Hospitalization)
  Sender: FDA-Public Use
  Company Number: None

PATIENT
  Age: 37 Year
  Sex: Female
  Weight: 84 kg

DRUGS (1)
  1. DIENOGEST\ESTRADIOL VALERATE [Suspect]
     Active Substance: DIENOGEST\ESTRADIOL VALERATE
     Indication: Oral contraception
     Dosage: 1 DF, QD
     Route: 048
     Dates: start: 20151201, end: 20151212

REACTIONS (6)
  - Dizziness [Recovering/Resolving]
  - Pyrexia [Recovering/Resolving]
  - Depression [Recovering/Resolving]
  - Fear [Recovering/Resolving]
  - Limb discomfort [Recovering/Resolving]
  - Tremor [Recovering/Resolving]

NARRATIVE: CASE EVENT DATE: 20151206
